FAERS Safety Report 23623439 (Version 1)
Quarter: 2024Q1

REPORT INFORMATION
  Report Type: Spontaneous
  Country: US (occurrence: US)
  Receive Date: 20240312
  Receipt Date: 20240312
  Transmission Date: 20240410
  Serious: No
  Sender: FDA-Public Use
  Company Number: US-KARYOPHARM-2023KPT002191

PATIENT

DRUGS (18)
  1. XPOVIO [Suspect]
     Active Substance: SELINEXOR
     Indication: Plasma cell myeloma
     Dosage: 60 MG, TWICE WEEKLY, MONDAY AND WEDNESDAY
     Route: 048
     Dates: start: 20220418
  2. ACYCLOVIR [Concomitant]
     Active Substance: ACYCLOVIR
  3. BREO ELLIPTA [Concomitant]
     Active Substance: FLUTICASONE FUROATE\VILANTEROL TRIFENATATE
  4. DEXAMETHASONE [Concomitant]
     Active Substance: DEXAMETHASONE
  5. GABAPENTIN [Concomitant]
     Active Substance: GABAPENTIN
  6. GLIPIZIDE [Concomitant]
     Active Substance: GLIPIZIDE
  7. JANUVIA [Concomitant]
     Active Substance: SITAGLIPTIN PHOSPHATE
  8. LOSARTAN [Concomitant]
     Active Substance: LOSARTAN
  9. MEDROL [Concomitant]
     Active Substance: METHYLPREDNISOLONE
  10. METFORMIN [Concomitant]
     Active Substance: METFORMIN HYDROCHLORIDE
  11. MONTELUKAST [Concomitant]
     Active Substance: MONTELUKAST SODIUM
  12. NITROGLYCERIN [Concomitant]
     Active Substance: NITROGLYCERIN
  13. OMEPRAZOLE [Concomitant]
     Active Substance: OMEPRAZOLE
  14. SIMVASTATIN [Concomitant]
     Active Substance: SIMVASTATIN
  15. TAMIFLU [Concomitant]
     Active Substance: OSELTAMIVIR PHOSPHATE
  16. TAMSULOSIN [Concomitant]
     Active Substance: TAMSULOSIN
  17. TRAMADOL [Concomitant]
     Active Substance: TRAMADOL\TRAMADOL HYDROCHLORIDE
  18. ZETIA [Concomitant]
     Active Substance: EZETIMIBE

REACTIONS (5)
  - Gait inability [Unknown]
  - Asthenia [Unknown]
  - Weight decreased [Unknown]
  - Decreased appetite [Unknown]
  - Product dose omission issue [Unknown]

NARRATIVE: CASE EVENT DATE: 20240101
